FAERS Safety Report 25741636 (Version 1)
Quarter: 2025Q3

REPORT INFORMATION
  Report Type: Report from Study
  Country: US (occurrence: US)
  Receive Date: 20250829
  Receipt Date: 20250829
  Transmission Date: 20251021
  Serious: Yes (Hospitalization, Disabling)
  Sender: BAUSCH AND LOMB
  Company Number: US-BAUSCH-BH-2025-016833

PATIENT
  Age: 62 Year
  Sex: Male

DRUGS (1)
  1. XIFAXAN [Suspect]
     Active Substance: RIFAXIMIN
     Indication: Product used for unknown indication
     Route: 065

REACTIONS (4)
  - Disability [Unknown]
  - Hospitalisation [Unknown]
  - Therapy interrupted [Unknown]
  - Inability to afford medication [Unknown]
